FAERS Safety Report 23703378 (Version 1)
Quarter: 2024Q2

REPORT INFORMATION
  Report Type: Spontaneous
  Country: US (occurrence: US)
  Receive Date: 20240403
  Receipt Date: 20240403
  Transmission Date: 20240716
  Serious: Yes (Other)
  Sender: FDA-Public Use
  Company Number: US-FreseniusKabi-FK202405250

PATIENT
  Age: 46 Year
  Sex: Female
  Weight: 75.3 kg

DRUGS (8)
  1. DIPRIVAN [Suspect]
     Active Substance: ISOPROPYL ALCOHOL\PROPOFOL
     Indication: Sedation
     Dosage: AT 0824 HOURS?ROUTE OF ADMINISTRATION: INTRAVENOUS?FREQUENCY: ONCE
     Dates: start: 20240116, end: 20240116
  2. DIPRIVAN [Suspect]
     Active Substance: ISOPROPYL ALCOHOL\PROPOFOL
     Dosage: STARTED AT 0824 AND STOPPED AT 0839 HOURS?ROUTE OF ADMINISTRATION: INTRAVENOUS?FREQUENCY: ONCE
     Dates: start: 20240116, end: 20240116
  3. NAPROXEN SODIUM [Concomitant]
     Active Substance: NAPROXEN\NAPROXEN SODIUM
     Indication: Dysmenorrhoea
     Dosage: FORM OF ADMIN: TABLET
     Route: 048
     Dates: start: 20231225, end: 20231226
  4. MIDAZOLAM [Concomitant]
     Active Substance: MIDAZOLAM
     Indication: Sedation
     Dosage: AT 0805 HOURS?ROUTE OF ADMINISTRATION: INTRAVENOUS?FREQUENCY: ONCE
     Dates: start: 20240116, end: 20240116
  5. ROPIVACAINE [Concomitant]
     Active Substance: ROPIVACAINE
     Indication: Neuromuscular blockade
     Dosage: FORM OF ADMIN: INJECTION?FREQUENCY: ONCE?AT 0815 HOURS
     Dates: start: 20240116, end: 20240116
  6. ROPIVACAINE [Concomitant]
     Active Substance: ROPIVACAINE
     Indication: Pain
     Dosage: AT 0903 HOURS AND DISCONTINUED AT 0930 HOURS?FORM OF ADMIN: POPLITEAL INFUSION CONTINUOUS
     Dates: start: 20240116, end: 20240116
  7. XYLOCAINE [Concomitant]
     Active Substance: LIDOCAINE HYDROCHLORIDE
     Indication: Nerve block
     Dosage: AT 0825 HOURS?FORM OF ADMIN: INJECTION?FREQUENCY: ONCE
     Dates: start: 20240116, end: 20240116
  8. FENTANYL [Concomitant]
     Active Substance: FENTANYL\FENTANYL CITRATE
     Indication: Pain
     Dosage: ROUTE OF ADMINISTRATION: INTRAVENOUS
     Dates: start: 20240116, end: 20240116

REACTIONS (2)
  - Aphasia [Recovered/Resolved]
  - Myoclonus [Recovered/Resolved]

NARRATIVE: CASE EVENT DATE: 20240116
